FAERS Safety Report 5906102-2 (Version None)
Quarter: 2008Q4

REPORT INFORMATION
  Report Type: 
  Country: None (occurrence: None)
  Receive Date: 20081002
  Receipt Date: 20080924
  Transmission Date: 20090506
  Serious: Yes (Hospitalization)
  Sender: FDA-Public Use
  Company Number: PHHY2008GB20127

PATIENT
  Sex: Male

DRUGS (9)
  1. COMTESS [Suspect]
     Indication: DRUG EFFECT DECREASED
     Dosage: UNK
     Route: 048
     Dates: start: 20060101, end: 20080101
  2. COMTESS [Suspect]
     Dosage: 200 MG, BID
     Route: 048
     Dates: start: 20080401, end: 20080601
  3. COMTESS [Suspect]
     Dosage: UNK
  4. SINEMET [Concomitant]
     Indication: PARKINSON'S DISEASE
     Dosage: 2 TABLETS
     Route: 048
  5. SINEMET [Concomitant]
     Dosage: 1 DF, TID
     Route: 048
  6. ASPIRIN [Concomitant]
     Route: 048
  7. SIMVASTATIN [Concomitant]
     Route: 048
  8. PERSANTIN [Concomitant]
     Dosage: 200 MG
     Route: 048
  9. GLICLAZIDE [Concomitant]
     Indication: DIABETES MELLITUS
     Dosage: 40 MG
     Route: 048
     Dates: start: 20080501

REACTIONS (3)
  - ABNORMAL BEHAVIOUR [None]
  - DIARRHOEA [None]
  - GASTROSTOMY TUBE INSERTION [None]
